FAERS Safety Report 17016092 (Version 3)
Quarter: 2020Q1

REPORT INFORMATION
  Report Type: Spontaneous
  Country: FR (occurrence: FR)
  Receive Date: 20191111
  Receipt Date: 20200311
  Transmission Date: 20200409
  Serious: Yes (Hospitalization)
  Sender: FDA-Public Use
  Company Number: FR-009507513-1911FRA001534

PATIENT
  Age: 44 Year
  Sex: Female

DRUGS (3)
  1. NEXPLANON [Suspect]
     Active Substance: ETONOGESTREL
     Dosage: 1 DOSAGE FORM
     Route: 059
     Dates: start: 20190121
  2. NEXPLANON [Suspect]
     Active Substance: ETONOGESTREL
     Dosage: 1 DOSAGE FORM
     Route: 059
     Dates: start: 2014
  3. NEXPLANON [Suspect]
     Active Substance: ETONOGESTREL
     Dosage: 1 DOSAGE FORM
     Route: 059
     Dates: start: 201501, end: 20190121

REACTIONS (9)
  - Menorrhagia [Unknown]
  - Dysstasia [Unknown]
  - Coagulopathy [Unknown]
  - Amenorrhoea [Unknown]
  - Blood pressure decreased [Unknown]
  - Menstrual disorder [Unknown]
  - Metrorrhagia [Unknown]
  - Incorrect product administration duration [Unknown]
  - Amenorrhoea [Unknown]

NARRATIVE: CASE EVENT DATE: 2014
